FAERS Safety Report 19867679 (Version 4)
Quarter: 2021Q4

REPORT INFORMATION
  Report Type: Spontaneous
  Country: US (occurrence: US)
  Receive Date: 20210922
  Receipt Date: 20211111
  Transmission Date: 20220303
  Serious: No
  Sender: FDA-Public Use
  Company Number: US-SLATE RUN PHARMACEUTICALS-21US000680

PATIENT

DRUGS (3)
  1. ARFORMOTEROL TARTRATE INHALATION [Suspect]
     Active Substance: ARFORMOTEROL TARTRATE
     Indication: Obliterative bronchiolitis
     Dosage: 1 DOSAGE FORM, BID
     Route: 055
     Dates: start: 202109
  2. ARFORMOTEROL TARTRATE INHALATION [Suspect]
     Active Substance: ARFORMOTEROL TARTRATE
     Dosage: 1 DOSAGE FORM, BID
     Route: 055
     Dates: start: 20210909, end: 202109
  3. ARFORMOTEROL TARTRATE [Concomitant]
     Active Substance: ARFORMOTEROL TARTRATE
     Indication: Obliterative bronchiolitis
     Dosage: 1 DOSAGE FORM, BID
     Route: 055
     Dates: start: 2016, end: 20210908

REACTIONS (4)
  - Off label use [Not Recovered/Not Resolved]
  - Product packaging quantity issue [Unknown]
  - Product leakage [Unknown]
  - Product dose omission issue [Unknown]

NARRATIVE: CASE EVENT DATE: 20210901
